FAERS Safety Report 9502485 (Version 2)
Quarter: 2013Q4

REPORT INFORMATION
  Report Type: Spontaneous
  Country: FR (occurrence: FR)
  Receive Date: 20130906
  Receipt Date: 20131021
  Transmission Date: 20140711
  Serious: Yes (Hospitalization)
  Sender: FDA-Public Use
  Company Number: FR-009507513-1308FRA014984

PATIENT
  Age: 56 Year
  Sex: Female

DRUGS (1)
  1. ZOCOR 20MG [Suspect]
     Dosage: 1 DF, QD
     Route: 048
     Dates: end: 20130525

REACTIONS (4)
  - Toxic skin eruption [Recovered/Resolved]
  - Rash macular [Recovered/Resolved]
  - Pruritus [Recovered/Resolved]
  - Rash erythematous [Recovered/Resolved]
